FAERS Safety Report 10301178 (Version 3)
Quarter: 2018Q2

REPORT INFORMATION
  Report Type: Spontaneous
  Country: DE (occurrence: DE)
  Receive Date: 20140714
  Receipt Date: 20180608
  Transmission Date: 20180711
  Serious: Yes (Hospitalization, Congenital Anomaly, Other)
  Sender: FDA-Public Use
  Company Number: DE-PFIZER INC-2014192297

PATIENT
  Sex: Male
  Weight: 3.64 kg

DRUGS (7)
  1. IBUPROFEN. [Suspect]
     Active Substance: IBUPROFEN
     Indication: SPONDYLOLISTHESIS
     Dosage: 800 MG, 3X/DAY, GESTATION PERIOD AT EXPOSURE: 0 TO 8+5 WEEKS
     Route: 064
  2. CELEBREX [Suspect]
     Active Substance: CELECOXIB
     Indication: SPONDYLOLISTHESIS
     Dosage: 200 MG, 1X/DAY (GESTATION PERIOD AT EXPOSURE: 0 TO 8+5  WEEKS)
     Route: 064
  3. TETRAZEPAM [Suspect]
     Active Substance: TETRAZEPAM
     Indication: HYPOTONIA
     Dosage: 50 MG, 1X/DAY, GESTATION PERIOD AT EXPOSURE: 0 TO 8+5 WEEKS
     Route: 064
  4. SALBUTAMOL [Suspect]
     Active Substance: ALBUTEROL
     Indication: ASTHMA
     Dosage: UNK, AS NEEDED
     Route: 064
     Dates: start: 20130327, end: 20130618
  5. FOLIO FORTE [Concomitant]
     Active Substance: FOLIC ACID\VITAMINS
     Indication: PROPHYLAXIS OF NEURAL TUBE DEFECT
     Dosage: 0.8 MG, 1X/DAY
     Route: 064
     Dates: start: 20130517, end: 20140609
  6. CELEBREX [Suspect]
     Active Substance: CELECOXIB
     Indication: PAIN
  7. VIANI [Suspect]
     Active Substance: FLUTICASONE PROPIONATE\SALMETEROL XINAFOATE
     Indication: ASTHMA
     Dosage: DURING ENTIRE PREGNANCY
     Route: 064

REACTIONS (3)
  - Maternal exposure during pregnancy [Recovered/Resolved with Sequelae]
  - Transposition of the great vessels [Recovered/Resolved with Sequelae]
  - Ventricular septal defect [Recovered/Resolved with Sequelae]
